FAERS Safety Report 9473733 (Version 1)
Quarter: 2013Q3

REPORT INFORMATION
  Report Type: Spontaneous
  Country: US (occurrence: US)
  Receive Date: 20130823
  Receipt Date: 20130823
  Transmission Date: 20140515
  Serious: No
  Sender: FDA-Public Use
  Company Number: US-BRISTOL-MYERS SQUIBB COMPANY-16942005

PATIENT
  Age: 42 Year
  Sex: Male
  Weight: 87.07 kg

DRUGS (2)
  1. SPRYCEL [Suspect]
     Indication: CHRONIC MYELOID LEUKAEMIA
     Route: 048
     Dates: start: 20120831
  2. BC POWDER [Concomitant]

REACTIONS (2)
  - Headache [Unknown]
  - Stomatitis [Unknown]
